FAERS Safety Report 13825339 (Version 1)
Quarter: 2017Q3

REPORT INFORMATION
  Report Type: Spontaneous
  Country: US (occurrence: US)
  Receive Date: 20170802
  Receipt Date: 20170802
  Transmission Date: 20171127
  Serious: No
  Sender: FDA-Public Use
  Company Number: US-EISAI MEDICAL RESEARCH-E2020-10449-SPO-US

PATIENT
  Age: 82 Year
  Sex: Male

DRUGS (4)
  1. ARICEPT [Suspect]
     Active Substance: DONEPEZIL HYDROCHLORIDE
     Indication: AMNESIA
     Dosage: BRANDED ARICEPT  5MG DAILY
     Route: 048
     Dates: start: 20081223, end: 20100902
  2. ARICEPT [Suspect]
     Active Substance: DONEPEZIL HYDROCHLORIDE
     Dosage: BRANDED ARICEPT  10 MG DAILY
     Route: 048
     Dates: start: 20100903, end: 201102
  3. ARICEPT [Suspect]
     Active Substance: DONEPEZIL HYDROCHLORIDE
     Dosage: GENERIC DONEPEZIL, 10 MG DAILY
     Route: 048
     Dates: start: 201102
  4. PREVACID [Concomitant]
     Active Substance: LANSOPRAZOLE

REACTIONS (5)
  - Tremor [Not Recovered/Not Resolved]
  - Diarrhoea [Recovered/Resolved]
  - Vomiting [Recovered/Resolved]
  - Transient ischaemic attack [Unknown]
  - Deafness transitory [Recovering/Resolving]

NARRATIVE: CASE EVENT DATE: 201007
